FAERS Safety Report 17486844 (Version 1)
Quarter: 2020Q1

REPORT INFORMATION
  Report Type: Spontaneous
  Country: CN (occurrence: CN)
  Receive Date: 20200303
  Receipt Date: 20200303
  Transmission Date: 20200409
  Serious: Yes (Hospitalization)
  Sender: FDA-Public Use
  Company Number: CN-ABBVIE-20K-035-3295192-00

PATIENT
  Age: 43 Year
  Sex: Male
  Weight: 80 kg

DRUGS (8)
  1. ALUVIA 200/50 [Suspect]
     Active Substance: LOPINAVIR\RITONAVIR
     Indication: PNEUMONIA VIRAL
     Route: 048
     Dates: start: 20200201, end: 20200207
  2. INTERFERON HUMAN [Concomitant]
     Active Substance: INTERFERON
     Indication: ANTIVIRAL TREATMENT
     Dosage: RECOMBINANT HUMAN INTERFERON #2B INJECTION
     Route: 055
     Dates: start: 20200201, end: 20200205
  3. SODIUM CHLORIDE. [Concomitant]
     Active Substance: SODIUM CHLORIDE
     Indication: VEHICLE SOLUTION USE
     Dosage: INJECTION
     Route: 041
     Dates: start: 20200131, end: 20200207
  4. CEFOPERAZONE SODIUM AND SULBACTAM SODIUM [Concomitant]
     Active Substance: CEFOPERAZONE SODIUM\SULBACTAM SODIUM
     Indication: ANTIINFLAMMATORY THERAPY
     Route: 041
     Dates: start: 20200131, end: 20200207
  5. KANG FU XIN YE [Concomitant]
     Indication: BLOOD DISORDER
     Route: 048
     Dates: start: 20200131, end: 20200207
  6. ALUVIA 200/50 [Suspect]
     Active Substance: LOPINAVIR\RITONAVIR
     Indication: CORONA VIRUS INFECTION
  7. STERILE WATER [Concomitant]
     Active Substance: WATER
     Indication: VEHICLE SOLUTION USE
     Route: 055
     Dates: start: 20200201, end: 20200205
  8. FAMOTIDINE. [Concomitant]
     Active Substance: FAMOTIDINE
     Indication: HYPERCHLORHYDRIA
     Dosage: FAMOTIDINE FOR INJECTION
     Route: 041
     Dates: start: 20200131, end: 20200207

REACTIONS (6)
  - Nausea [Not Recovered/Not Resolved]
  - Off label use [Unknown]
  - Abdominal discomfort [Unknown]
  - Diarrhoea [Not Recovered/Not Resolved]
  - Hepatic function abnormal [Not Recovered/Not Resolved]
  - Retching [Not Recovered/Not Resolved]

NARRATIVE: CASE EVENT DATE: 20200201
